FAERS Safety Report 8623093-4 (Version None)
Quarter: 2012Q3

REPORT INFORMATION
  Report Type: 
  Country: None (occurrence: None)
  Receive Date: 20120827
  Receipt Date: 20120817
  Transmission Date: 20120928
  Serious: Yes (Other)
  Sender: FDA-Public Use
  Company Number: US-JNJFOC-20120810338

PATIENT
  Sex: Male
  Weight: 94.3 kg

DRUGS (5)
  1. CYTOXAN [Concomitant]
     Indication: LYMPHOMA
     Route: 065
     Dates: start: 20120331
  2. RITUXAN [Concomitant]
     Indication: LYMPHOMA
     Route: 065
     Dates: start: 20120331
  3. DOXORUBICIN HYDROCHLORIDE [Suspect]
     Indication: LYMPHOMA
     Route: 042
     Dates: start: 20120531, end: 20120531
  4. VINCRISTINE [Concomitant]
     Indication: LYMPHOMA
     Route: 065
     Dates: start: 20120331
  5. BENADRYL [Concomitant]
     Indication: PREMEDICATION
     Route: 042

REACTIONS (6)
  - FLUSHING [None]
  - HYPERSENSITIVITY [None]
  - INFUSION RELATED REACTION [None]
  - OXYGEN SATURATION DECREASED [None]
  - DYSPNOEA [None]
  - BACK PAIN [None]
